FAERS Safety Report 5406050-0 (Version None)
Quarter: 2007Q3

REPORT INFORMATION
  Report Type: 
  Country: None (occurrence: None)
  Receive Date: 20070806
  Receipt Date: 20070801
  Transmission Date: 20080115
  Serious: Yes (Hospitalization)
  Sender: FDA-Public Use
  Company Number: B0477042A

PATIENT
  Age: 54 Year
  Sex: Male

DRUGS (4)
  1. AVANDIA [Suspect]
     Indication: DRUG USE FOR UNKNOWN INDICATION
     Route: 065
  2. DIABEX [Concomitant]
     Route: 065
  3. COVERSYL [Concomitant]
     Dosage: 5U UNKNOWN
     Route: 065
  4. DIAMICRON [Concomitant]
     Dosage: 80MG UNKNOWN
     Route: 065

REACTIONS (2)
  - ANGINA UNSTABLE [None]
  - MYOCARDIAL INFARCTION [None]
